FAERS Safety Report 7607139-8 (Version None)
Quarter: 2011Q3

REPORT INFORMATION
  Report Type: 
  Country: None (occurrence: None)
  Receive Date: 20110713
  Receipt Date: 20110708
  Transmission Date: 20111222
  Serious: Yes (Death, Hospitalization)
  Sender: FDA-Public Use
  Company Number: US-PFIZER INC-2009160272

PATIENT
  Sex: Female
  Weight: 68.481 kg

DRUGS (13)
  1. NORTRIPTYLINE [Concomitant]
     Dosage: UNK
     Route: 048
     Dates: start: 19950101
  2. PROTONIX [Concomitant]
     Dosage: UNK
     Route: 048
     Dates: start: 20011201
  3. IRINOTECAN HCL [Suspect]
     Indication: RECTAL CANCER
     Dosage: 204 MG,EVERY 2 WEEKS
     Route: 042
     Dates: start: 20081201, end: 20090119
  4. AXITINIB [Suspect]
     Indication: RECTAL CANCER
     Dosage: 5 MG, 2X/DAY
     Route: 048
     Dates: start: 20081201, end: 20090120
  5. LORTAB [Concomitant]
     Dosage: UNK
     Route: 048
     Dates: start: 20071120
  6. ZIAC [Concomitant]
     Dosage: UNK
     Route: 048
     Dates: start: 20081205
  7. LEUCOVORIN CALCIUM [Suspect]
     Indication: RECTAL CANCER
     Dosage: 716 MG, EVERY 2 WEEKS
     Route: 042
     Dates: start: 20081201, end: 20090119
  8. VITAMIN E [Concomitant]
     Dosage: UNK
     Route: 048
     Dates: start: 20080609
  9. XANAX [Concomitant]
     Dosage: UNK
     Route: 048
     Dates: start: 20080501
  10. FLUOROURACIL [Suspect]
     Indication: RECTAL CANCER
     Dosage: 544 MG, EVERY 2 WEEKS
     Route: 040
     Dates: start: 20081201, end: 20090119
  11. FLUOROURACIL [Suspect]
     Dosage: 3264 MG, EVERY 2 WEEKS
     Route: 041
     Dates: start: 20081201, end: 20090121
  12. SOMA [Concomitant]
     Dosage: UNK
     Route: 048
     Dates: start: 20080922
  13. LOMOTIL [Concomitant]
     Dosage: UNK
     Route: 048
     Dates: start: 20051101

REACTIONS (6)
  - SEPSIS [None]
  - NAUSEA [None]
  - HAEMORRHAGE [None]
  - DRUG TOLERANCE DECREASED [None]
  - VOMITING [None]
  - CARDIAC ARREST [None]
